FAERS Safety Report 16748110 (Version 1)
Quarter: 2019Q3

REPORT INFORMATION
  Report Type: Spontaneous
  Country: FR (occurrence: FR)
  Receive Date: 20190827
  Receipt Date: 20190827
  Transmission Date: 20191005
  Serious: Yes (Other)
  Sender: FDA-Public Use
  Company Number: FR-GILEAD-2019-0425401

PATIENT
  Age: 68 Year
  Sex: Male
  Weight: 82 kg

DRUGS (2)
  1. SUSTIVA [Suspect]
     Active Substance: EFAVIRENZ
     Indication: HIV TEST POSITIVE
     Dosage: NON RENSEIGN?E
     Route: 048
     Dates: start: 2016
  2. GENVOYA [Suspect]
     Active Substance: COBICISTAT\ELVITEGRAVIR\EMTRICITABINE\TENOFOVIR ALAFENAMIDE FUMARATE
     Indication: HIV TEST POSITIVE
     Dosage: 1 DOSAGE FORM
     Route: 048
     Dates: start: 20160201

REACTIONS (3)
  - Ageusia [Not Recovered/Not Resolved]
  - Renal failure [Not Recovered/Not Resolved]
  - Anosmia [Not Recovered/Not Resolved]

NARRATIVE: CASE EVENT DATE: 2016
